FAERS Safety Report 7237368-7 (Version None)
Quarter: 2011Q1

REPORT INFORMATION
  Report Type: 
  Country: None (occurrence: None)
  Receive Date: 20110121
  Receipt Date: 20110113
  Transmission Date: 20110831
  Serious: Yes (Other)
  Sender: FDA-Public Use
  Company Number: ES-BRISTOL-MYERS SQUIBB COMPANY-15494008

PATIENT
  Age: 71 Year
  Sex: Male

DRUGS (9)
  1. MASDIL [Concomitant]
     Dosage: TAB
  2. PERMIXON [Concomitant]
     Dosage: TAB
  3. CARDYL [Suspect]
     Dosage: CARDYL 10 MG COMPRIMIDOS RECUBIERTOS ,28 COMPRIMIDOS FILM COATED TAB
     Route: 048
     Dates: start: 20051024
  4. PENTOXIFYLLINE [Suspect]
     Dosage: PENTOXIFILINE BELMAC 400MG COMPRIMIDOS,60 COMPRIMIDOS
     Route: 048
     Dates: start: 20100427
  5. MIXTARD HUMAN 70/30 [Concomitant]
     Dosage: 1 DF: MIXTARD INNOLET 100UI/ML 5 PLU PREC 3 ML SUS INY
  6. METFORMIN HCL [Suspect]
     Dosage: 1 DF: 3 DIARIOS 850MG COMPRIMIDOS RECUBIERTOS CON PELICULA,50 COMPRIMIDOS
     Route: 048
     Dates: start: 20051024
  7. CHLORTHALIDONE [Suspect]
     Dosage: 1 DF: 1/2 DIARIOS HIGROTONA 50MG ,30 COMPRIMIDOS  TAB
     Route: 048
     Dates: start: 20061110
  8. OMEPRAZOLE [Concomitant]
     Dosage: 10 MG HARD CAPSULE OMEPRAZOLE NORMON
  9. ACTRAPID [Concomitant]
     Dosage: 1 DF: 100UI/ML 5 INNOLET 3 ML.ACTARPID INNOLET

REACTIONS (1)
  - DECREASED APPETITE [None]
